FAERS Safety Report 6537972-5 (Version None)
Quarter: 2010Q1

REPORT INFORMATION
  Report Type: 
  Country: None (occurrence: None)
  Receive Date: 20100112
  Receipt Date: 20100112
  Transmission Date: 20100710
  Serious: Yes (Hospitalization)
  Sender: FDA-Public Use
  Company Number: None

PATIENT
  Age: 27 Year
  Sex: Female
  Weight: 83.4619 kg

DRUGS (1)
  1. OCELLA 3 MG TEVA [Suspect]
     Indication: POLYCYSTIC OVARIES
     Dosage: 1 TABLET ONCE DAILY PO
     Route: 048

REACTIONS (4)
  - GALLBLADDER NON-FUNCTIONING [None]
  - IMPAIRED WORK ABILITY [None]
  - NEPHROLITHIASIS [None]
  - PANCREATITIS [None]
